FAERS Safety Report 5366471-1 (Version None)
Quarter: 2007Q2

REPORT INFORMATION
  Report Type: 
  Country: None (occurrence: None)
  Receive Date: 20070622
  Receipt Date: 20070620
  Transmission Date: 20071010
  Serious: Yes (Death, Other)
  Sender: FDA-Public Use
  Company Number: PHFR2003GB02524

PATIENT
  Age: 32 Year
  Sex: Male

DRUGS (4)
  1. CLOZARIL [Suspect]
     Indication: SCHIZOPHRENIA
     Route: 048
     Dates: start: 20001114
  2. VALPROATE SODIUM [Concomitant]
     Indication: MOOD SWINGS
     Dates: start: 20020101
  3. DIAZEPAM [Concomitant]
     Indication: AGITATION
     Dates: start: 20030101
  4. AMISULPRIDE [Concomitant]
     Dates: start: 20020101

REACTIONS (6)
  - ABNORMAL BEHAVIOUR [None]
  - AGGRESSION [None]
  - CARDIAC ARREST [None]
  - CONVULSION [None]
  - DYSPNOEA [None]
  - RESPIRATORY ARREST [None]
